FAERS Safety Report 16994822 (Version 1)
Quarter: 2019Q4

REPORT INFORMATION
  Report Type: Spontaneous
  Country: IT (occurrence: IT)
  Receive Date: 20191105
  Receipt Date: 20191105
  Transmission Date: 20200122
  Serious: Yes (Disabling)
  Sender: FDA-Public Use
  Company Number: IT-JNJFOC-20191047983

PATIENT
  Age: 75 Year
  Sex: Male

DRUGS (1)
  1. RIVAROXABAN [Suspect]
     Active Substance: RIVAROXABAN
     Indication: ATRIAL FIBRILLATION
     Route: 048
     Dates: start: 20191016

REACTIONS (3)
  - Intraventricular haemorrhage [Not Recovered/Not Resolved]
  - Hemiplegia [Not Recovered/Not Resolved]
  - Thalamus haemorrhage [Not Recovered/Not Resolved]

NARRATIVE: CASE EVENT DATE: 20191016
